FAERS Safety Report 19298574 (Version 2)
Quarter: 2021Q2

REPORT INFORMATION
  Report Type: Spontaneous
  Country: SI (occurrence: SI)
  Receive Date: 20210524
  Receipt Date: 20210605
  Transmission Date: 20210717
  Serious: Yes (Other)
  Sender: FDA-Public Use
  Company Number: NVSC2021SI112445

PATIENT
  Sex: Male

DRUGS (4)
  1. JAKAVI [Suspect]
     Active Substance: RUXOLITINIB
     Dosage: 20 MG, BID (2 X)
     Route: 065
     Dates: start: 20181206
  2. EXJADE [Suspect]
     Active Substance: DEFERASIROX
     Indication: PRODUCT USED FOR UNKNOWN INDICATION
     Dosage: 1 DF
     Route: 065
  3. JAKAVI [Suspect]
     Active Substance: RUXOLITINIB
     Indication: PRODUCT USED FOR UNKNOWN INDICATION
     Dosage: 10 MG, BID (2 X)
     Route: 065
     Dates: start: 20181019
  4. ARANESP [Concomitant]
     Active Substance: DARBEPOETIN ALFA
     Indication: PRODUCT USED FOR UNKNOWN INDICATION
     Dosage: 500 UG, Q3W
     Route: 065

REACTIONS (27)
  - Blood lactate dehydrogenase increased [Unknown]
  - Osteolysis [Unknown]
  - Weight increased [Unknown]
  - Herpes zoster [Unknown]
  - Myocardial infarction [Unknown]
  - Hypertensive heart disease [Unknown]
  - Therapeutic response decreased [Unknown]
  - Hiatus hernia [Unknown]
  - Iron deficiency [Unknown]
  - Latent tuberculosis [Unknown]
  - Primary myelofibrosis [Recovering/Resolving]
  - Blood thyroid stimulating hormone increased [Unknown]
  - Pancytopenia [Recovering/Resolving]
  - Bicytopenia [Unknown]
  - Anaemia [Not Recovered/Not Resolved]
  - Neutrophil count decreased [Unknown]
  - Splenomegaly [Recovering/Resolving]
  - Diverticulum [Unknown]
  - Haemorrhoids [Unknown]
  - Thrombocytopenia [Not Recovered/Not Resolved]
  - Pleural thickening [Unknown]
  - Fibrosis [Unknown]
  - Arteriosclerosis [Unknown]
  - Interstitial lung disease [Unknown]
  - Myelosuppression [Recovering/Resolving]
  - Mastocytosis [Unknown]
  - Benign prostatic hyperplasia [Unknown]

NARRATIVE: CASE EVENT DATE: 201812
